FAERS Safety Report 18008624 (Version 1)
Quarter: 2020Q3

REPORT INFORMATION
  Report Type: Spontaneous
  Country: CN (occurrence: CN)
  Receive Date: 20200710
  Receipt Date: 20200710
  Transmission Date: 20201103
  Serious: Yes (Hospitalization)
  Sender: FDA-Public Use
  Company Number: CN-GLAXOSMITHKLINE-CN2020APC118944

PATIENT
  Age: 24 Year
  Sex: Female
  Weight: 51 kg

DRUGS (1)
  1. ZINACEF [Suspect]
     Active Substance: CEFUROXIME SODIUM
     Indication: OROPHARYNGEAL PAIN
     Dosage: 250 MG, BID
     Route: 048
     Dates: start: 20200616, end: 20200618

REACTIONS (1)
  - Petechiae [Recovering/Resolving]

NARRATIVE: CASE EVENT DATE: 20200619
